FAERS Safety Report 10615797 (Version 1)
Quarter: 2014Q4

REPORT INFORMATION
  Report Type: Spontaneous
  Country: IL (occurrence: IL)
  Receive Date: 20141201
  Receipt Date: 20141201
  Transmission Date: 20150529
  Serious: Yes (Hospitalization)
  Sender: FDA-Public Use
  Company Number: IL-JNJFOC-20141113723

PATIENT
  Age: 30 Year
  Sex: Male

DRUGS (4)
  1. XARELTO [Suspect]
     Active Substance: RIVAROXABAN
     Indication: EMBOLISM VENOUS
     Route: 048
     Dates: start: 20141115, end: 20141116
  2. XARELTO [Suspect]
     Active Substance: RIVAROXABAN
     Indication: PULMONARY EMBOLISM
     Route: 048
     Dates: start: 20141115, end: 20141116
  3. TAVANIC [Concomitant]
     Active Substance: LEVOFLOXACIN
     Indication: PNEUMONIA
     Route: 065
     Dates: start: 20141115, end: 20141116
  4. TEGRETOL [Concomitant]
     Active Substance: CARBAMAZEPINE
     Indication: EPILEPSY
     Route: 065

REACTIONS (2)
  - Rash generalised [Unknown]
  - Hypersensitivity [Unknown]

NARRATIVE: CASE EVENT DATE: 20141116
